FAERS Safety Report 5406835-0 (Version None)
Quarter: 2007Q3

REPORT INFORMATION
  Report Type: 
  Country: None (occurrence: None)
  Receive Date: 20070807
  Receipt Date: 20070726
  Transmission Date: 20080115
  Serious: Yes (Other)
  Sender: FDA-Public Use
  Company Number: US-JNJFOC-20070706236

PATIENT
  Sex: Male
  Weight: 88 kg

DRUGS (11)
  1. REMICADE [Suspect]
     Route: 042
  2. REMICADE [Suspect]
     Route: 042
  3. REMICADE [Suspect]
     Route: 042
  4. REMICADE [Suspect]
     Route: 042
  5. REMICADE [Suspect]
     Indication: RHEUMATOID ARTHRITIS
     Route: 042
  6. BENADRYL [Concomitant]
     Indication: PREMEDICATION
  7. TYLENOL (CAPLET) [Concomitant]
     Indication: PREMEDICATION
  8. MTX [Concomitant]
     Indication: RHEUMATOID ARTHRITIS
  9. XANAX [Concomitant]
     Indication: ANXIETY
  10. HYDROCODONE BITARTRATE [Concomitant]
     Indication: PAIN
  11. PREDNISONE TAB [Concomitant]

REACTIONS (4)
  - CYANOSIS [None]
  - INFUSION RELATED REACTION [None]
  - THERAPEUTIC RESPONSE DECREASED [None]
  - TREMOR [None]
